FAERS Safety Report 6209613-8 (Version None)
Quarter: 2009Q2

REPORT INFORMATION
  Report Type: 
  Country: None (occurrence: None)
  Receive Date: 20090529
  Receipt Date: 20090529
  Transmission Date: 20091009
  Serious: Yes (Other)
  Sender: FDA-Public Use
  Company Number: None

PATIENT
  Sex: Female
  Weight: 59.4212 kg

DRUGS (4)
  1. ZOLOFT [Suspect]
     Indication: ANXIETY
     Dosage: 100MG ONE BID PO
     Route: 048
     Dates: start: 20080501
  2. ZOLOFT [Suspect]
     Indication: DEPRESSION
     Dosage: 100MG ONE BID PO
     Route: 048
     Dates: start: 20080501
  3. ZOLOFT [Suspect]
     Indication: ANXIETY
     Dosage: 100MG ONE BID PO
     Route: 048
     Dates: start: 20090401
  4. ZOLOFT [Suspect]
     Indication: DEPRESSION
     Dosage: 100MG ONE BID PO
     Route: 048
     Dates: start: 20090401

REACTIONS (4)
  - CONFUSIONAL STATE [None]
  - DIZZINESS [None]
  - FALL [None]
  - PRODUCT SUBSTITUTION ISSUE [None]
